FAERS Safety Report 15695837 (Version 1)
Quarter: 2018Q4

REPORT INFORMATION
  Report Type: Spontaneous
  Country: US (occurrence: US)
  Receive Date: 20181126
  Receipt Date: 20181126
  Transmission Date: 20190205
  Serious: No
  Sender: FDA-Public Use
  Company Number: None

PATIENT
  Age: 73 Year
  Sex: Female

DRUGS (1)
  1. WARFARIN [Suspect]
     Active Substance: WARFARIN
     Indication: ANTICOAGULANT THERAPY
     Route: 048
     Dates: start: 20180718

REACTIONS (8)
  - Shock haemorrhagic [None]
  - Urinary tract infection [None]
  - Blood pressure decreased [None]
  - Mental status changes [None]
  - Tachycardia [None]
  - Gastrointestinal haemorrhage [None]
  - Hemiparesis [None]
  - Haematochezia [None]

NARRATIVE: CASE EVENT DATE: 20180718
